FAERS Safety Report 4558740-X (Version None)
Quarter: 2005Q1

REPORT INFORMATION
  Report Type: 
  Country: None (occurrence: None)
  Receive Date: 20050121
  Receipt Date: 20050121
  Transmission Date: 20050727
  Serious: No
  Sender: FDA-Public Use
  Company Number: None

PATIENT
  Sex: Male
  Weight: 46.7205 kg

DRUGS (1)
  1. GATIFLOXACIN [Suspect]
     Dosage: 400MG  ONCE
     Dates: start: 20041124, end: 20041124

REACTIONS (4)
  - ERYTHEMA [None]
  - INFUSION RELATED REACTION [None]
  - INFUSION SITE ERYTHEMA [None]
  - INFUSION SITE PRURITUS [None]
